FAERS Safety Report 9515356 (Version 1)
Quarter: 2013Q3

REPORT INFORMATION
  Report Type: Spontaneous
  Country: US (occurrence: US)
  Receive Date: 20130911
  Receipt Date: 20130911
  Transmission Date: 20140515
  Serious: Yes (Hospitalization)
  Sender: FDA-Public Use
  Company Number: US-BAYER-2013-106610

PATIENT
  Age: 32 Year
  Sex: Female
  Weight: 78.91 kg

DRUGS (7)
  1. YASMIN [Suspect]
  2. MINOCYCLINE [Concomitant]
     Indication: ACNE
     Dosage: 100 MG, UNK
  3. PAXIL [Concomitant]
     Indication: ANXIETY
     Dosage: 5 MG, UNK
  4. PAXIL [Concomitant]
     Indication: ANXIETY
     Dosage: 20 MG, UNK
  5. TEMAZEPAM [Concomitant]
  6. PAROXETINE [Concomitant]
     Indication: ANXIETY
  7. TORADOL [Concomitant]

REACTIONS (1)
  - Pulmonary embolism [None]
